FAERS Safety Report 7174956-0 (Version None)
Quarter: 2010Q4

REPORT INFORMATION
  Report Type: 
  Country: None (occurrence: None)
  Receive Date: 20101220
  Receipt Date: 20100406
  Transmission Date: 20110411
  Serious: No
  Sender: FDA-Public Use
  Company Number: US-AMGEN-TCS403952

PATIENT

DRUGS (2)
  1. ENBREL [Suspect]
     Indication: PSORIASIS
     Dosage: 25 MG, 2 TIMES/WK
     Dates: start: 20040914
  2. CELEXA [Concomitant]
     Dosage: UNK UNK, UNK

REACTIONS (3)
  - DRY EYE [None]
  - EYE SWELLING [None]
  - GASTROINTESTINAL DISORDER [None]
